FAERS Safety Report 14549423 (Version 1)
Quarter: 2018Q1

REPORT INFORMATION
  Report Type: Spontaneous
  Country: US (occurrence: US)
  Receive Date: 20180219
  Receipt Date: 20180219
  Transmission Date: 20180509
  Serious: Yes (Other)
  Sender: FDA-Public Use
  Company Number: 2018-AILEX-000001

PATIENT
  Age: 3 Year
  Sex: Male

DRUGS (1)
  1. SODIUM PHENYLACETATE AND SODIUM BENZOATE [Suspect]
     Active Substance: SODIUM BENZOATE\SODIUM PHENYLACETATE
     Indication: HYPERAMMONAEMIA
     Route: 040

REACTIONS (4)
  - Drug ineffective [Recovered/Resolved]
  - Anion gap increased [Recovered/Resolved]
  - Blood lactic acid increased [Recovered/Resolved]
  - Ammonia decreased [Recovered/Resolved]

NARRATIVE: CASE EVENT DATE: 20180106
